FAERS Safety Report 16820746 (Version 1)
Quarter: 2019Q3

REPORT INFORMATION
  Report Type: Spontaneous
  Country: JP (occurrence: JP)
  Receive Date: 20190918
  Receipt Date: 20190918
  Transmission Date: 20191005
  Serious: Yes (Hospitalization)
  Sender: FDA-Public Use
  Company Number: JP-ROCHE-2411815

PATIENT
  Age: 47 Year
  Sex: Male

DRUGS (6)
  1. MONTELUKAST SODIUM. [Suspect]
     Active Substance: MONTELUKAST SODIUM
     Indication: ASTHMA
     Dosage: 10 MG, UNK
     Route: 048
  2. OMALIZUMAB. [Suspect]
     Active Substance: OMALIZUMAB
     Indication: ASTHMA
     Route: 058
  3. FLUTICASONE FUROATE [Suspect]
     Active Substance: FLUTICASONE FUROATE
     Indication: ASTHMA
     Dosage: 100 UG, UNK
     Route: 055
  4. THEOPHYLLINE [Suspect]
     Active Substance: THEOPHYLLINE ANHYDROUS
     Indication: ASTHMA
     Dosage: 400 MG, UNK
     Route: 048
  5. VILANTEROL [Suspect]
     Active Substance: VILANTEROL TRIFENATATE
     Indication: ASTHMA
     Dosage: 25 UG, UNK
     Route: 055
  6. TIOTROPIUM [Suspect]
     Active Substance: TIOTROPIUM
     Indication: ASTHMA
     Dosage: 5 UG, UNK
     Route: 055

REACTIONS (2)
  - Asthma [Unknown]
  - Drug ineffective [Unknown]
